FAERS Safety Report 24842193 (Version 1)
Quarter: 2025Q1

REPORT INFORMATION
  Report Type: Spontaneous
  Country: US (occurrence: US)
  Receive Date: 20250115
  Receipt Date: 20250115
  Transmission Date: 20250409
  Serious: No
  Sender: SANOFI AVENTIS
  Company Number: US-SA-2025SA009437

PATIENT
  Sex: Male
  Weight: 68.18 kg

DRUGS (5)
  1. DUPIXENT [Suspect]
     Active Substance: DUPILUMAB
     Indication: Dermatitis atopic
     Dosage: 300 MG QOW
     Route: 058
  2. OMEPRAZOLE [Concomitant]
     Active Substance: OMEPRAZOLE
  3. LYRICA [Concomitant]
     Active Substance: PREGABALIN
  4. LOSARTAN POTASSIUM [Concomitant]
     Active Substance: LOSARTAN POTASSIUM
  5. NIFEDIPINE [Concomitant]
     Active Substance: NIFEDIPINE

REACTIONS (1)
  - Eczema [Unknown]
